FAERS Safety Report 25496207 (Version 2)
Quarter: 2025Q3

REPORT INFORMATION
  Report Type: Spontaneous
  Country: US (occurrence: US)
  Receive Date: 20250630
  Receipt Date: 20250708
  Transmission Date: 20251021
  Serious: No
  Sender: GLAXOSMITHKLINE
  Company Number: US-GSK-US2025069544

PATIENT
  Sex: Male

DRUGS (1)
  1. TRELEGY ELLIPTA [Suspect]
     Active Substance: FLUTICASONE FUROATE\UMECLIDINIUM BROMIDE\VILANTEROL TRIFENATATE
     Indication: Bronchiectasis
     Dosage: 1 PUFF(S), QD, 1 INHALATION 100/62.5/25 MCG BY MOUTH DAILY

REACTIONS (5)
  - Dyspnoea [Unknown]
  - Therapeutic product effect decreased [Unknown]
  - Extra dose administered [Unknown]
  - Off label use [Unknown]
  - Product complaint [Unknown]
